FAERS Safety Report 23361063 (Version 2)
Quarter: 2024Q1

REPORT INFORMATION
  Report Type: Spontaneous
  Country: US (occurrence: US)
  Receive Date: 20240103
  Receipt Date: 20240112
  Transmission Date: 20240409
  Serious: No
  Sender: FDA-Public Use
  Company Number: US-ELI_LILLY_AND_COMPANY-US202401000335

PATIENT
  Sex: Female

DRUGS (2)
  1. EMGALITY [Suspect]
     Active Substance: GALCANEZUMAB-GNLM
     Indication: Migraine
     Dosage: 240 MG, OTHER (LOADING DOSE)
     Route: 065
     Dates: start: 20231204, end: 20231204
  2. NURTEC ODT [Concomitant]
     Active Substance: RIMEGEPANT SULFATE
     Indication: Migraine

REACTIONS (6)
  - Alopecia [Unknown]
  - Anxiety [Unknown]
  - Depression [Unknown]
  - Panic attack [Unknown]
  - Brain fog [Unknown]
  - Madarosis [Unknown]
